FAERS Safety Report 20316171 (Version 2)
Quarter: 2022Q1

REPORT INFORMATION
  Report Type: Spontaneous
  Country: US (occurrence: US)
  Receive Date: 20220110
  Receipt Date: 20220111
  Transmission Date: 20220423
  Serious: No
  Sender: FDA-Public Use
  Company Number: US-ORGANON-O2201USA000621

PATIENT
  Age: 57 Year
  Sex: Female

DRUGS (1)
  1. DIPROLENE [Suspect]
     Active Substance: BETAMETHASONE DIPROPIONATE
     Indication: Plasma cell vulvitis
     Dosage: UNK, ON VULVA ONCE DAILY
     Route: 061

REACTIONS (1)
  - Product use in unapproved indication [Unknown]
